FAERS Safety Report 13035379 (Version 1)
Quarter: 2016Q4

REPORT INFORMATION
  Report Type: Spontaneous
  Country: US (occurrence: US)
  Receive Date: 20161215
  Receipt Date: 20161215
  Transmission Date: 20170207
  Serious: No
  Sender: FDA-Public Use
  Company Number: None

PATIENT
  Age: 59 Year
  Sex: Female

DRUGS (8)
  1. ZETIA [Concomitant]
     Active Substance: EZETIMIBE
  2. CALCIUM [Concomitant]
     Active Substance: CALCIUM
  3. SYNTHROID [Concomitant]
     Active Substance: LEVOTHYROXINE SODIUM
  4. URSODIOL. [Concomitant]
     Active Substance: URSODIOL
  5. HYDROXYZINE [Concomitant]
     Active Substance: HYDROXYZINE\HYDROXYZINE HYDROCHLORIDE
  6. OCALIVA [Suspect]
     Active Substance: OBETICHOLIC ACID
     Indication: BILIARY CIRRHOSIS PRIMARY
     Route: 048
     Dates: start: 20160817
  7. ALENDRONATE [Concomitant]
     Active Substance: ALENDRONATE SODIUM
  8. CHOLESTYRAMINE. [Concomitant]
     Active Substance: CHOLESTYRAMINE

REACTIONS (1)
  - Hepatic enzyme increased [None]

NARRATIVE: CASE EVENT DATE: 20161207
